FAERS Safety Report 21004042 (Version 3)
Quarter: 2023Q1

REPORT INFORMATION
  Report Type: Spontaneous
  Country: AR (occurrence: AR)
  Receive Date: 20220624
  Receipt Date: 20230308
  Transmission Date: 20230418
  Serious: Yes (Other)
  Sender: FDA-Public Use
  Company Number: AR-PFIZER INC-PV202200007653

PATIENT
  Age: 45 Year
  Sex: Female

DRUGS (3)
  1. XELJANZ [Suspect]
     Active Substance: TOFACITINIB CITRATE
     Indication: Rheumatoid arthritis
     Dosage: 5 MG, 2X/DAY
     Dates: start: 20181109
  2. POLIRREUMIN [Concomitant]
     Dosage: UNK
     Dates: start: 202212
  3. ALIDASE [Concomitant]
     Active Substance: NAPROXEN
     Dosage: UNK
     Dates: start: 2022

REACTIONS (3)
  - Arthrodesis [Not Recovered/Not Resolved]
  - Leukopenia [Unknown]
  - COVID-19 [Recovered/Resolved]

NARRATIVE: CASE EVENT DATE: 20220701
